FAERS Safety Report 20610587 (Version 1)
Quarter: 2022Q1

REPORT INFORMATION
  Report Type: Spontaneous
  Country: GR (occurrence: GR)
  Receive Date: 20220318
  Receipt Date: 20220318
  Transmission Date: 20220423
  Serious: Yes (Life-Threatening, Other)
  Sender: FDA-Public Use
  Company Number: None

PATIENT
  Age: 68 Year
  Sex: Male
  Weight: 80 kg

DRUGS (6)
  1. OLUMIANT [Suspect]
     Active Substance: BARICITINIB
     Indication: COVID-19 treatment
     Dosage: 4 MG ONCE A DAY
     Route: 048
     Dates: start: 20220302, end: 20220303
  2. VEKLURY [Concomitant]
     Active Substance: REMDESIVIR
     Indication: COVID-19 treatment
     Dosage: 200 MG, SINGLE
     Route: 042
     Dates: start: 20220226, end: 20220302
  3. VEKLURY [Concomitant]
     Active Substance: REMDESIVIR
     Dosage: 100 MG, DAILY FOR 4 DAYS
     Route: 042
     Dates: start: 20220226, end: 20220302
  4. ENOXAPARIN SODIUM [Concomitant]
     Active Substance: ENOXAPARIN SODIUM
     Indication: COVID-19 treatment
     Dosage: 0.4, DAILY
     Route: 065
     Dates: start: 20220226
  5. LOSEC [Concomitant]
     Active Substance: OMEPRAZOLE
     Indication: Prophylaxis
     Dosage: 40, DAILY
     Route: 042
     Dates: start: 20220226
  6. DEXAMETHASONE [Concomitant]
     Active Substance: DEXAMETHASONE
     Indication: COVID-19 treatment
     Dosage: 6 MG ONCE A DAY
     Route: 042
     Dates: start: 20220226

REACTIONS (5)
  - Acute myocardial infarction [Not Recovered/Not Resolved]
  - Thrombosis [Unknown]
  - Chest pain [Unknown]
  - Electrocardiogram ST segment elevation [Unknown]
  - Off label use [Unknown]

NARRATIVE: CASE EVENT DATE: 20220303
